FAERS Safety Report 8906348 (Version 1)
Quarter: 2012Q4

REPORT INFORMATION
  Report Type: Spontaneous
  Country: US (occurrence: None)
  Receive Date: 20121108
  Receipt Date: 20121108
  Transmission Date: 20130627
  Serious: Yes (Other)
  Sender: FDA-Public Use
  Company Number: AXC-2012-000521

PATIENT
  Age: 77 Year
  Sex: Female

DRUGS (2)
  1. MESALAMINE [Suspect]
     Indication: CROHN^S DISEASE
  2. INFLIXIMAB [Suspect]
     Dosage: 5 mg/kg, single, Unknown

REACTIONS (10)
  - Gastric cancer [None]
  - Oesophageal ulcer [None]
  - Dysphagia [None]
  - Weight decreased [None]
  - Hypophagia [None]
  - Cachexia [None]
  - Gastric ulcer [None]
  - Clostridial infection [None]
  - Diarrhoea [None]
  - Hypophagia [None]
